FAERS Safety Report 6870021-8 (Version None)
Quarter: 2010Q3

REPORT INFORMATION
  Report Type: 
  Country: None (occurrence: None)
  Receive Date: 20100722
  Receipt Date: 20100710
  Transmission Date: 20110219
  Serious: Yes (Other)
  Sender: FDA-Public Use
  Company Number: US-PFIZER INC-2010013639

PATIENT
  Sex: Male
  Weight: 77.098 kg

DRUGS (12)
  1. CHANTIX [Suspect]
     Indication: SMOKING CESSATION THERAPY
     Dosage: 0.5 MG, 1X/DAY
     Route: 048
     Dates: start: 20100201, end: 20100101
  2. CHANTIX [Suspect]
     Dosage: 1 MG, 2X/DAY
     Route: 048
     Dates: start: 20100401, end: 20100414
  3. KALETRA [Concomitant]
     Indication: ACQUIRED IMMUNODEFICIENCY SYNDROME
     Dosage: 400/50 TWICE A DAY
     Route: 048
  4. TRUVADA [Concomitant]
     Indication: ACQUIRED IMMUNODEFICIENCY SYNDROME
     Dosage: UNK MG, 1X/DAY
     Route: 048
  5. DIOVAN HCT [Concomitant]
     Indication: HYPERTENSION
     Dosage: 160/25
     Route: 048
  6. METOPROLOL SUCCINATE [Concomitant]
     Indication: HYPERTENSION
     Dosage: 12.5 MG, 1X/DAY
  7. CRESTOR [Concomitant]
     Indication: BLOOD CHOLESTEROL INCREASED
     Dosage: 5 MG, 1X/DAY
     Route: 048
  8. FINASTERIDE [Concomitant]
     Indication: PROSTATIC DISORDER
     Dosage: 5 MG, 1X/DAY
  9. NIASPAN [Concomitant]
     Dosage: UNK
  10. FLONASE [Concomitant]
     Dosage: UNK
  11. TESTOSTERONE [Concomitant]
     Indication: ANDROGEN DEFICIENCY
     Dosage: UNK
  12. LORATADINE [Concomitant]
     Indication: HYPERSENSITIVITY
     Dosage: UNK

REACTIONS (5)
  - ANGER [None]
  - BLOOD HIV RNA [None]
  - DEPRESSION [None]
  - HOMICIDAL IDEATION [None]
  - NERVOUSNESS [None]
